FAERS Safety Report 9599583 (Version 2)
Quarter: 2013Q4

REPORT INFORMATION
  Report Type: Spontaneous
  Country: US (occurrence: US)
  Receive Date: 20131004
  Receipt Date: 20131004
  Transmission Date: 20140711
  Serious: No
  Sender: FDA-Public Use
  Company Number: US-AMGEN-USASP2013024176

PATIENT
  Age: 31 Year
  Sex: Male
  Weight: 81.63 kg

DRUGS (4)
  1. ENBREL [Suspect]
     Indication: PSORIASIS
     Dosage: 50 MG, 2 TIMES/WK (72-96 HRS APART)
     Dates: start: 20130308
  2. CLOBETASOL 0.05% [Concomitant]
     Indication: PSORIASIS
     Dosage: UNK UNK, BID
     Route: 061
     Dates: start: 20130410
  3. ZEGERID                            /00661201/ [Concomitant]
     Dosage: UNK UNK, QD
     Route: 048
  4. CYMBALTA [Concomitant]
     Dosage: UNK UNK, QD
     Route: 048

REACTIONS (2)
  - Chest discomfort [Recovered/Resolved]
  - Hypersensitivity [Unknown]
